FAERS Safety Report 22079914 (Version 1)
Quarter: 2023Q1

REPORT INFORMATION
  Report Type: Spontaneous
  Country: PL (occurrence: PL)
  Receive Date: 20230309
  Receipt Date: 20230309
  Transmission Date: 20230417
  Serious: Yes (Hospitalization, Other)
  Sender: FDA-Public Use
  Company Number: PL-EXELTIS PHARMACEUTICAL HOLDING, S.L.-2302PL01302

PATIENT
  Age: 64 Year
  Sex: Female

DRUGS (7)
  1. OMEPRAZOLE [Interacting]
     Active Substance: OMEPRAZOLE
     Indication: Product used for unknown indication
     Dosage: 40 MILLIGRAM, QD
  2. PROPAFENONE [Interacting]
     Active Substance: PROPAFENONE
     Indication: Atrial fibrillation
     Dosage: 450 MILLIGRAM, QD
  3. METOPROLOL [Concomitant]
     Active Substance: METOPROLOL
     Indication: Atrial fibrillation
     Dosage: 100 MILLIGRAM, QD
  4. RIVAROXABAN [Concomitant]
     Active Substance: RIVAROXABAN
     Indication: Atrial fibrillation
     Dosage: 20 MILLIGRAM, QD
  5. ZOLPIDEM [Concomitant]
     Active Substance: ZOLPIDEM TARTRATE
     Indication: Sleep disorder
     Dosage: 10 MILLIGRAM, QD 30 MINUTES BEFORE BEDTIME
  6. PAROXETINE [Concomitant]
     Active Substance: PAROXETINE
     Indication: Depression
     Dosage: 20 MILLIGRAM, QD
  7. DOXYLAMINE [Interacting]
     Active Substance: DOXYLAMINE
     Indication: Depression
     Dosage: 25 MILLIGRAM, QD 30 MINUTES BEFORE BEDTIME

REACTIONS (3)
  - Drug interaction [Unknown]
  - Rhabdomyolysis [Unknown]
  - Acute kidney injury [Unknown]
